FAERS Safety Report 6394213-X (Version None)
Quarter: 2009Q4

REPORT INFORMATION
  Report Type: 
  Country: None (occurrence: None)
  Receive Date: 20091008
  Receipt Date: 20091001
  Transmission Date: 20100525
  Serious: Yes (Hospitalization)
  Sender: FDA-Public Use
  Company Number: FR-MERCK-0910FRA00003

PATIENT
  Age: 62 Year
  Sex: Male

DRUGS (14)
  1. EMEND [Suspect]
     Indication: PROPHYLAXIS OF NAUSEA AND VOMITING
     Route: 048
     Dates: start: 20081114, end: 20081114
  2. EMEND [Suspect]
     Route: 048
     Dates: start: 20081115, end: 20081116
  3. CISPLATIN [Suspect]
     Indication: SQUAMOUS CELL CARCINOMA
     Route: 042
     Dates: start: 20081114, end: 20081114
  4. VINORELBINE TARTRATE [Suspect]
     Indication: SQUAMOUS CELL CARCINOMA
     Route: 042
     Dates: start: 20081114, end: 20081114
  5. ONDANSETRON HYDROCHLORIDE [Suspect]
     Route: 042
     Dates: start: 20081114, end: 20081114
  6. METHYLPREDNISOLONE SODIUM SUCCINATE [Suspect]
     Route: 048
     Dates: start: 20081114, end: 20081114
  7. METFORMIN PAMOATE [Concomitant]
     Route: 065
  8. SITAGLIPTIN PHOSPHATE [Concomitant]
     Route: 048
  9. ALPRAZOLAM [Concomitant]
     Route: 065
     Dates: start: 20081003, end: 20081113
  10. DILTIAZEM HYDROCHLORIDE [Concomitant]
     Route: 048
  11. CANDESARTAN CILEXETIL AND HYDROCHLOROTHIAZIDE [Concomitant]
     Route: 065
  12. EZETIMIBE [Concomitant]
     Route: 048
  13. ATORVASTATIN CALCIUM [Concomitant]
     Route: 048
  14. ASPIRIN LYSINE [Concomitant]
     Route: 065

REACTIONS (7)
  - CIRCULATORY COLLAPSE [None]
  - HYPERKALAEMIA [None]
  - ILEUS PARALYTIC [None]
  - PANCREATITIS ACUTE [None]
  - PANCREATITIS NECROTISING [None]
  - RENAL FAILURE ACUTE [None]
  - SINOATRIAL BLOCK [None]
